FAERS Safety Report 6931166-7 (Version None)
Quarter: 2010Q3

REPORT INFORMATION
  Report Type: 
  Country: None (occurrence: None)
  Receive Date: 20100813
  Receipt Date: 20100809
  Transmission Date: 20110219
  Serious: Yes (Hospitalization, Other)
  Sender: FDA-Public Use
  Company Number: 2010SP042034

PATIENT
  Age: 66 Year
  Sex: Female
  Weight: 77.1115 kg

DRUGS (7)
  1. CLARITIN [Suspect]
     Indication: HYPERSENSITIVITY
     Dosage: 10 MG; PO
     Route: 048
     Dates: start: 20100201, end: 20100201
  2. CLARITIN [Suspect]
     Indication: LACRIMATION INCREASED
     Dosage: 10 MG; PO
     Route: 048
     Dates: start: 20100201, end: 20100201
  3. CLARITIN [Suspect]
     Indication: RHINORRHOEA
     Dosage: 10 MG; PO
     Route: 048
     Dates: start: 20100201, end: 20100201
  4. CLARITIN [Suspect]
     Indication: SNEEZING
     Dosage: 10 MG; PO
     Route: 048
     Dates: start: 20100201, end: 20100201
  5. RITUXAN [Suspect]
  6. ZIAC [Suspect]
  7. REQUIP [Concomitant]

REACTIONS (1)
  - PLATELET COUNT DECREASED [None]
